FAERS Safety Report 9908509 (Version 1)
Quarter: 2014Q1

REPORT INFORMATION
  Report Type: Spontaneous
  Country: US (occurrence: None)
  Receive Date: 20140214
  Receipt Date: 20140214
  Transmission Date: 20141002
  Serious: Yes (Hospitalization)
  Sender: FDA-Public Use
  Company Number: None

PATIENT
  Age: 67 Year
  Sex: Female
  Weight: 55 kg

DRUGS (7)
  1. AFINITOR [Suspect]
     Indication: BREAST CANCER
     Dosage: CHRONIC, LAST DOSE 12/26
     Route: 048
  2. AROMASIN [Suspect]
     Indication: BREAST CANCER
     Dosage: CHRONIC, LAST DOSE 1/3
     Route: 048
  3. PRAVASTATIN [Concomitant]
  4. LEVOTHYROXINE [Concomitant]
  5. IMITREX [Concomitant]
  6. VIT D [Concomitant]
  7. CALCIUM [Concomitant]

REACTIONS (6)
  - Respiratory failure [None]
  - Pulmonary haemorrhage [None]
  - Pulmonary granuloma [None]
  - Pulmonary toxicity [None]
  - Cough [None]
  - Pneumonitis [None]
